FAERS Safety Report 15543598 (Version 1)
Quarter: 2018Q4

REPORT INFORMATION
  Report Type: Spontaneous
  Country: US (occurrence: US)
  Receive Date: 20181023
  Receipt Date: 20181023
  Transmission Date: 20190205
  Serious: No
  Sender: FDA-Public Use
  Company Number: US-ACTELION-A-NJ2018-176262

PATIENT
  Age: 54 Year
  Sex: Male
  Weight: 102.95 kg

DRUGS (4)
  1. VELETRI [Suspect]
     Active Substance: EPOPROSTENOL
     Indication: PULMONARY HYPERTENSION
     Dosage: 9 NG/KG, PER MIN
     Route: 042
  2. ADEMPAS [Concomitant]
     Active Substance: RIOCIGUAT
  3. VELETRI [Suspect]
     Active Substance: EPOPROSTENOL
     Dosage: 4 NG/KG, PER MIN
     Route: 042
  4. OPSUMIT [Concomitant]
     Active Substance: MACITENTAN

REACTIONS (13)
  - Vomiting [Unknown]
  - Headache [Unknown]
  - Flushing [Unknown]
  - Cough [Unknown]
  - Dyspnoea [Unknown]
  - Rash macular [Unknown]
  - Eye swelling [Unknown]
  - Dizziness exertional [Unknown]
  - Nausea [Unknown]
  - Pain in jaw [Unknown]
  - Therapy non-responder [Unknown]
  - Diarrhoea [Unknown]
  - Dizziness [Unknown]
